FAERS Safety Report 9257825 (Version 1)
Quarter: 2013Q1

REPORT INFORMATION
  Report Type: Spontaneous
  Country: US (occurrence: None)
  Receive Date: 20121212
  Receipt Date: 20121212
  Transmission Date: 20140127
  Serious: No
  Sender: FDA-Public Use
  Company Number: 1209USA000037

PATIENT
  Age: 57 Year
  Sex: Male

DRUGS (3)
  1. REBETOL [Suspect]
     Indication: HEPATITIS C
     Dates: start: 20120710
  2. VICTRELIS [Suspect]
     Indication: HEPATITIS C
     Dates: start: 20120810
  3. PEGASYS (PEGINTERFERON ALFA-2A) [Concomitant]
     Dates: start: 20120710

REACTIONS (8)
  - Contusion [None]
  - Pain in extremity [None]
  - Fatigue [None]
  - Dyspnoea [None]
  - Headache [None]
  - Dysgeusia [None]
  - Diarrhoea [None]
  - Nausea [None]
